FAERS Safety Report 4436905-5 (Version None)
Quarter: 2004Q3

REPORT INFORMATION
  Report Type: 
  Country: None (occurrence: None)
  Receive Date: 20040823
  Receipt Date: 20040806
  Transmission Date: 20050211
  Serious: Yes (Other)
  Sender: FDA-Public Use
  Company Number: 200410304BBE

PATIENT
  Age: 43 Year
  Sex: Male

DRUGS (3)
  1. GAMIMUNE N 10% [Suspect]
     Indication: PEMPHIGUS
     Dosage: 2000 G, INTRAVENOUS; 2000 MG/KG, INTRAVENOUS
     Route: 042
  2. GAMIMUNE N 10% [Suspect]
     Indication: PEMPHIGUS
     Dosage: 2000 G, INTRAVENOUS; 2000 MG/KG, INTRAVENOUS
     Route: 042
  3. ANTIHYPERTENSIVES [Concomitant]

REACTIONS (6)
  - ANAL FISSURE [None]
  - CHILLS [None]
  - DEEP VEIN THROMBOSIS [None]
  - LETHARGY [None]
  - MOBILITY DECREASED [None]
  - THERAPY NON-RESPONDER [None]
